FAERS Safety Report 10364349 (Version 1)
Quarter: 2014Q3

REPORT INFORMATION
  Report Type: Spontaneous
  Country: US (occurrence: US)
  Receive Date: 20140806
  Receipt Date: 20140806
  Transmission Date: 20150326
  Serious: Yes (Hospitalization)
  Sender: FDA-Public Use
  Company Number: US-ABBVIE-14P-163-1267175-00

PATIENT
  Sex: Male

DRUGS (23)
  1. PHENOBARBITAL. [Suspect]
     Active Substance: PHENOBARBITAL
     Indication: CONVULSION
  2. CARBAMAZEPINE. [Suspect]
     Active Substance: CARBAMAZEPINE
     Indication: CONVULSION
  3. LEVETIRACETAM. [Suspect]
     Active Substance: LEVETIRACETAM
     Indication: CONVULSION
  4. KEPPRA [Suspect]
     Active Substance: LEVETIRACETAM
     Indication: CONVULSION
  5. PREGABALIN. [Suspect]
     Active Substance: PREGABALIN
     Indication: CONVULSION
  6. LYRICA [Suspect]
     Active Substance: PREGABALIN
     Indication: CONVULSION
  7. DEPAKOTE [Suspect]
     Active Substance: DIVALPROEX SODIUM
     Indication: CONVULSION
  8. VALPROIC ACID. [Suspect]
     Active Substance: VALPROIC ACID
     Indication: CONVULSION
  9. VALIUM [Suspect]
     Active Substance: DIAZEPAM
     Indication: CONVULSION
  10. TEGRETOL [Suspect]
     Active Substance: CARBAMAZEPINE
     Indication: CONVULSION
  11. GABITRIL [Suspect]
     Active Substance: TIAGABINE HYDROCHLORIDE
     Indication: CONVULSION
  12. VIMPAT [Suspect]
     Active Substance: LACOSAMIDE
     Indication: CONVULSION
     Dosage: 100 MG:2 TABLETS IN MORNING AND 3 TABLETS IN EVENING
  13. FELBAMATE. [Suspect]
     Active Substance: FELBAMATE
     Indication: CONVULSION
  14. DEPAKENE [Suspect]
     Active Substance: VALPROIC ACID
     Indication: CONVULSION
  15. NEURONTIN [Suspect]
     Active Substance: GABAPENTIN
     Indication: CONVULSION
  16. DILANTIN [Suspect]
     Active Substance: PHENYTOIN
     Indication: CONVULSION
  17. MYSOLINE [Suspect]
     Active Substance: PRIMIDONE
     Indication: CONVULSION
  18. TOPIRAMATE. [Suspect]
     Active Substance: TOPIRAMATE
     Indication: CONVULSION
  19. PRIMIDONE. [Suspect]
     Active Substance: PRIMIDONE
     Indication: CONVULSION
  20. ZONEGRAN [Suspect]
     Active Substance: ZONISAMIDE
     Indication: CONVULSION
  21. TOPAMAX [Suspect]
     Active Substance: TOPIRAMATE
     Indication: CONVULSION
  22. LAMICTAL [Suspect]
     Active Substance: LAMOTRIGINE
     Indication: CONVULSION
  23. ZONISAMIDE. [Suspect]
     Active Substance: ZONISAMIDE
     Indication: CONVULSION

REACTIONS (12)
  - Spinal compression fracture [Unknown]
  - Foot fracture [Unknown]
  - Clavicle fracture [Unknown]
  - Ligament sprain [Unknown]
  - Lower limb fracture [Unknown]
  - Laceration [Unknown]
  - Facial bones fracture [Unknown]
  - Joint injury [Unknown]
  - Rib fracture [Unknown]
  - Drug ineffective [Unknown]
  - Convulsion [Unknown]
  - Road traffic accident [Unknown]
